FAERS Safety Report 5761475-9 (Version None)
Quarter: 2008Q2

REPORT INFORMATION
  Report Type: 
  Country: None (occurrence: None)
  Receive Date: 20080606
  Receipt Date: 20080602
  Transmission Date: 20081010
  Serious: Yes (Hospitalization)
  Sender: FDA-Public Use
  Company Number: US-BOEHRINGER INGELHEIM GMBH, GERMANY-2008-BP-08733BP

PATIENT
  Sex: Female

DRUGS (6)
  1. COMBIVENT [Suspect]
     Indication: EMPHYSEMA
     Route: 055
     Dates: start: 19980101
  2. CELEBREX [Suspect]
     Indication: INTERVERTEBRAL DISC PROTRUSION
  3. ASPIRIN [Suspect]
     Indication: ARTERIAL OCCLUSIVE DISEASE
     Dates: start: 20070101, end: 20080401
  4. XOPENEX [Concomitant]
     Indication: DYSPNOEA
     Dates: start: 20070101
  5. IPRATROPIUM BROMIDE [Concomitant]
     Indication: DYSPNOEA
     Dates: start: 20070101
  6. OXYGEN [Concomitant]
     Indication: DYSPNOEA
     Dates: start: 20080101

REACTIONS (2)
  - CORONARY ARTERY OCCLUSION [None]
  - GASTROINTESTINAL HAEMORRHAGE [None]
